FAERS Safety Report 15829692 (Version 2)
Quarter: 2020Q1

REPORT INFORMATION
  Report Type: Spontaneous
  Country: US (occurrence: US)
  Receive Date: 20190115
  Receipt Date: 20200122
  Transmission Date: 20200409
  Serious: No
  Sender: FDA-Public Use
  Company Number: US-ALLERGAN-1849955US

PATIENT
  Sex: Female

DRUGS (3)
  1. RESTORE PM [Concomitant]
     Dosage: UNK
     Route: 047
  2. ACUICYN [Concomitant]
     Dosage: UNK
     Route: 047
  3. RESTASIS [Suspect]
     Active Substance: CYCLOSPORINE
     Indication: DRY EYE
     Dosage: UNK
     Route: 047
     Dates: start: 2018

REACTIONS (3)
  - Eye irritation [Unknown]
  - Multiple use of single-use product [Unknown]
  - Drug ineffective [Unknown]
